FAERS Safety Report 11782253 (Version 1)
Quarter: 2015Q4

REPORT INFORMATION
  Report Type: Spontaneous
  Country: US (occurrence: US)
  Receive Date: 20151127
  Receipt Date: 20151127
  Transmission Date: 20160305
  Serious: Yes (Death, Other)
  Sender: FDA-Public Use
  Company Number: US-ZYDUS-009538

PATIENT
  Age: 53 Year
  Sex: Male

DRUGS (1)
  1. AMIODARONE [Suspect]
     Active Substance: AMIODARONE
     Indication: TACHYCARDIA
     Dosage: 900MG IN 500CC OF 5% DEXTROSE
     Route: 042

REACTIONS (3)
  - Coagulopathy [Fatal]
  - Hepatic failure [Fatal]
  - Multi-organ failure [Fatal]
